FAERS Safety Report 20766476 (Version 1)
Quarter: 2022Q2

REPORT INFORMATION
  Report Type: Report from Study
  Country: JP (occurrence: JP)
  Receive Date: 20220428
  Receipt Date: 20220428
  Transmission Date: 20220721
  Serious: Yes (Hospitalization)
  Sender: FDA-Public Use
  Company Number: JP-SA-2020SA301619

PATIENT
  Age: 80 Year
  Sex: Male
  Weight: 63 kg

DRUGS (8)
  1. VANDETANIB [Suspect]
     Active Substance: VANDETANIB
     Indication: Medullary thyroid cancer
     Dosage: 200 MG/DAY
     Route: 048
     Dates: start: 20200106, end: 20200512
  2. VANDETANIB [Suspect]
     Active Substance: VANDETANIB
     Dosage: 200 MG/DAY
     Route: 048
     Dates: start: 20190624, end: 20191023
  3. SENNOSIDES A AND B [Concomitant]
     Active Substance: SENNOSIDES A AND B
     Indication: Constipation prophylaxis
     Dosage: 12 MG (1 TAB), QD
     Route: 048
  4. ASPIRIN [Concomitant]
     Active Substance: ASPIRIN
     Indication: Cerebrovascular accident prophylaxis
     Dosage: DAILY DOSE: 100 MG
     Route: 048
  5. JANUVIA [Concomitant]
     Active Substance: SITAGLIPTIN PHOSPHATE
     Indication: Diabetes mellitus
     Dosage: DAILY DOSE: 50 MG
     Route: 048
  6. UNISIA [Concomitant]
     Active Substance: AMLODIPINE BESYLATE\CANDESARTAN CILEXETIL
     Indication: Hypertension
     Dosage: 1 DF, QD
     Route: 048
  7. METGLUCO [Concomitant]
     Active Substance: METFORMIN HYDROCHLORIDE
     Indication: Diabetes mellitus
     Dosage: DAILY DOSE: 1000 MG
     Route: 048
  8. CRESTOR [Concomitant]
     Active Substance: ROSUVASTATIN CALCIUM
     Indication: Dyslipidaemia
     Dosage: DAILY DOSE: 2.5 MG
     Route: 048

REACTIONS (1)
  - Protein urine [Recovering/Resolving]

NARRATIVE: CASE EVENT DATE: 20200316
